FAERS Safety Report 25375040 (Version 1)
Quarter: 2025Q2

REPORT INFORMATION
  Report Type: Spontaneous
  Country: US (occurrence: None)
  Receive Date: 20250529
  Receipt Date: 20250529
  Transmission Date: 20250717
  Serious: Yes (Life-Threatening, Hospitalization, Disabling)
  Sender: FDA-CTU
  Company Number: None

PATIENT
  Age: 30 Year
  Sex: Male

DRUGS (1)
  1. DULOXETINE [Suspect]
     Active Substance: DULOXETINE
     Indication: Back pain
     Route: 048
     Dates: start: 20240701, end: 20250124

REACTIONS (3)
  - Psychotic disorder [None]
  - Anxiety [None]
  - Mood swings [None]

NARRATIVE: CASE EVENT DATE: 20250124
